FAERS Safety Report 9436626 (Version 1)
Quarter: 2013Q3

REPORT INFORMATION
  Report Type: Spontaneous
  Country: US (occurrence: None)
  Receive Date: 20130801
  Receipt Date: 20130801
  Transmission Date: 20140515
  Serious: Yes (Life-Threatening)
  Sender: FDA-Public Use
  Company Number: None

PATIENT
  Age: 73 Year
  Sex: Female
  Weight: 73 kg

DRUGS (1)
  1. KYPROLIS [Suspect]

REACTIONS (4)
  - Pulmonary oedema [None]
  - Cardiogenic shock [None]
  - Cardiac failure congestive [None]
  - Condition aggravated [None]
